FAERS Safety Report 7054153-X (Version None)
Quarter: 2010Q4

REPORT INFORMATION
  Report Type: 
  Country: None (occurrence: None)
  Receive Date: 20101020
  Receipt Date: 20101011
  Transmission Date: 20110411
  Serious: Yes (Hospitalization, Other)
  Sender: FDA-Public Use
  Company Number: US-TEVA-251188USA

PATIENT
  Age: 62 Year
  Sex: Female

DRUGS (2)
  1. MERCAPTOPURINE [Suspect]
     Indication: ANAL FISTULA
     Dates: start: 20020101
  2. ALLOPURINOL [Concomitant]
     Dates: start: 20080301

REACTIONS (1)
  - ACUTE MYELOID LEUKAEMIA [None]
